FAERS Safety Report 6064400-9 (Version None)
Quarter: 2009Q1

REPORT INFORMATION
  Report Type: 
  Country: None (occurrence: None)
  Receive Date: 20090204
  Receipt Date: 20090127
  Transmission Date: 20090719
  Serious: Yes (Other)
  Sender: FDA-Public Use
  Company Number: US-ASTRAZENECA-2009UW02333

PATIENT
  Age: 40 Year
  Sex: Male
  Weight: 90.7 kg

DRUGS (4)
  1. NEXIUM [Suspect]
     Indication: GASTROOESOPHAGEAL REFLUX DISEASE
     Route: 048
     Dates: start: 20040101
  2. ADDERALL 10 [Concomitant]
  3. HYDROCODONE [Concomitant]
  4. XANAX [Concomitant]

REACTIONS (1)
  - LEUKAEMIA [None]
